FAERS Safety Report 17521397 (Version 1)
Quarter: 2020Q1

REPORT INFORMATION
  Report Type: Spontaneous
  Country: BR (occurrence: BR)
  Receive Date: 20200310
  Receipt Date: 20200310
  Transmission Date: 20200409
  Serious: Yes (Other)
  Sender: FDA-Public Use
  Company Number: NVSC2020BR064499

PATIENT
  Age: 61 Year
  Sex: Male

DRUGS (1)
  1. ENTRESTO [Suspect]
     Active Substance: SACUBITRIL\VALSARTAN
     Indication: CARDIAC DISORDER
     Dosage: 50 MG, BID (ONE TABLET OF 24/ 26 MG AT 9 AM AND 9 PM)
     Route: 065

REACTIONS (4)
  - Product shape issue [Unknown]
  - Product physical issue [Unknown]
  - Poor quality product administered [Unknown]
  - Drug dependence [Unknown]

NARRATIVE: CASE EVENT DATE: 20200215
